FAERS Safety Report 8763288 (Version 3)
Quarter: 2012Q4

REPORT INFORMATION
  Report Type: 
  Country: JP (occurrence: JP)
  Receive Date: 20120831
  Receipt Date: 20121126
  Transmission Date: 20130627
  Serious: Yes (Hospitalization)
  Sender: FDA-Public Use
  Company Number: JP-009507513-2012SP017865

PATIENT
  Age: 66 Year
  Sex: Female
  Weight: 53 kg

DRUGS (10)
  1. PEGINTRON [Suspect]
     Indication: HEPATITIS C
     Dosage: 1.5 Microgram per kilogram, qw
     Route: 058
     Dates: start: 20120207, end: 20120710
  2. REBETOL [Suspect]
     Indication: HEPATITIS C
     Dosage: 600 mg, QD
     Route: 048
     Dates: start: 20120207, end: 20120305
  3. REBETOL [Suspect]
     Dosage: 200 mg, QD
     Route: 048
     Dates: start: 20120306
  4. REBETOL [Suspect]
     Dosage: 400 mg, qd
     Route: 048
     Dates: start: 20120508
  5. REBETOL [Suspect]
     Dosage: 600 mg, qd
     Route: 048
     Dates: start: 20120529, end: 20120718
  6. TELAVIC [Suspect]
     Indication: HEPATITIS C
     Dosage: 2250 mg, QD
     Route: 048
     Dates: start: 20120207, end: 20120220
  7. TELAVIC [Suspect]
     Dosage: 1500 mg, QD
     Route: 048
     Dates: start: 20120221, end: 20120305
  8. TELAVIC [Suspect]
     Dosage: 1000 mg, QD
     Route: 048
     Dates: start: 20120306
  9. TELAVIC [Suspect]
     Dosage: 1500 mg, QD
     Route: 048
     Dates: start: 20120427
  10. CEFMETAZOLE SODIUM [Concomitant]
     Indication: CHOLECYSTITIS
     Dosage: 2 g, qd Trade name unknown
     Route: 042
     Dates: start: 20120330, end: 20120405

REACTIONS (3)
  - Cholecystitis acute [Recovered/Resolved]
  - Appendicitis [Recovered/Resolved]
  - Anaemia [Not Recovered/Not Resolved]
